FAERS Safety Report 7118560-9 (Version None)
Quarter: 2010Q4

REPORT INFORMATION
  Report Type: 
  Country: None (occurrence: None)
  Receive Date: 20101123
  Receipt Date: 20101103
  Transmission Date: 20110411
  Serious: Yes (Other)
  Sender: FDA-Public Use
  Company Number: US-PFIZER INC-2010151147

PATIENT
  Sex: Female

DRUGS (5)
  1. MOTRIN IB [Suspect]
     Indication: ARTHRALGIA
     Dosage: 200 MG, 3X/DAY
     Route: 048
     Dates: start: 20100201
  2. ATENOLOL [Concomitant]
     Dosage: UNK
  3. MORPHINE HYDROCHLORIDE [Concomitant]
     Indication: INTERVERTEBRAL DISC DEGENERATION
     Dosage: UNK
  4. REQUIP [Concomitant]
     Dosage: UNK
  5. ZOLOFT [Concomitant]
     Dosage: UNK

REACTIONS (2)
  - HYPERTENSION [None]
  - INTENTIONAL DRUG MISUSE [None]
